FAERS Safety Report 4616292-X (Version None)
Quarter: 2005Q1

REPORT INFORMATION
  Report Type: 
  Country: None (occurrence: None)
  Receive Date: 20050321
  Receipt Date: 20050309
  Transmission Date: 20050727
  Serious: Yes (Other)
  Sender: FDA-Public Use
  Company Number: 2004109514

PATIENT
  Sex: Female
  Weight: 109.7705 kg

DRUGS (3)
  1. CELEBREX [Suspect]
     Indication: OSTEOARTHRITIS
     Dosage: 200 MG (200 MG, 1 IN 1 D), ORAL
     Route: 048
     Dates: start: 20040101
  2. ACTONEL [Concomitant]
  3. NASONEX [Concomitant]

REACTIONS (3)
  - ARTHRITIS [None]
  - DIVERTICULITIS [None]
  - DRUG EFFECT DECREASED [None]
